FAERS Safety Report 21044188 (Version 1)
Quarter: 2022Q3

REPORT INFORMATION
  Report Type: Other
  Country: CN (occurrence: None)
  Receive Date: 20220705
  Receipt Date: 20220705
  Transmission Date: 20221027
  Serious: Yes (Other)
  Sender: FDA-Public Use
  Company Number: CN-ROCHE-3128200

PATIENT

DRUGS (1)
  1. BEVACIZUMAB [Suspect]
     Active Substance: BEVACIZUMAB
     Indication: Non-small cell lung cancer
     Dosage: ON THE FIRST DAY OF CHEMOTHERAPY, WITH 3 WEEKS AS ONE CHEMOTHERAPY CYCLE, CONTINUOUS TREATMENT OF 2
     Route: 041

REACTIONS (1)
  - Myelosuppression [Unknown]
